FAERS Safety Report 4381227-4 (Version None)
Quarter: 2004Q2

REPORT INFORMATION
  Report Type: 
  Country: None (occurrence: None)
  Receive Date: 20040616
  Receipt Date: 20040524
  Transmission Date: 20050107
  Serious: No
  Sender: FDA-Public Use
  Company Number: USA040568383

PATIENT
  Age: 30 Year
  Sex: Female

DRUGS (1)
  1. ZYPREXA [Suspect]
     Indication: BIPOLAR DISORDER
     Dosage: 10 MG/1 DAY
     Dates: start: 20040301

REACTIONS (3)
  - GALACTORRHOEA [None]
  - MENSTRUATION IRREGULAR [None]
  - UTERINE HAEMORRHAGE [None]
